FAERS Safety Report 17413491 (Version 1)
Quarter: 2020Q1

REPORT INFORMATION
  Report Type: Spontaneous
  Country: AU (occurrence: AU)
  Receive Date: 20200213
  Receipt Date: 20200213
  Transmission Date: 20200409
  Serious: Yes (Hospitalization)
  Sender: FDA-Public Use
  Company Number: AU-ASTRAZENECA-2018SE49513

PATIENT
  Age: 24073 Day
  Sex: Male
  Weight: 91 kg

DRUGS (1)
  1. DAPAGLIFOZIN [Suspect]
     Active Substance: DAPAGLIFLOZIN
     Dosage: DAILY
     Route: 048
     Dates: start: 20160601, end: 20171231

REACTIONS (1)
  - Euglycaemic diabetic ketoacidosis [Recovering/Resolving]

NARRATIVE: CASE EVENT DATE: 20171229
